FAERS Safety Report 8322760-X (Version None)
Quarter: 2012Q2

REPORT INFORMATION
  Report Type: 
  Country: None (occurrence: None)
  Receive Date: 20120430
  Receipt Date: 20120419
  Transmission Date: 20120825
  Serious: Yes (Other)
  Sender: FDA-Public Use
  Company Number: MX-ELI_LILLY_AND_COMPANY-MX201204008561

PATIENT
  Sex: Male

DRUGS (1)
  1. FORTEO [Suspect]
     Indication: OSTEOPOROSIS
     Dosage: UNK
     Dates: start: 20111001

REACTIONS (4)
  - PLATELET TRANSFUSION [None]
  - HYPOCHROMIC ANAEMIA [None]
  - TRANSFUSION [None]
  - SPINAL OPERATION [None]
